FAERS Safety Report 5410552-0 (Version None)
Quarter: 2007Q3

REPORT INFORMATION
  Report Type: 
  Country: None (occurrence: None)
  Receive Date: 20070810
  Receipt Date: 20070228
  Transmission Date: 20080115
  Serious: No
  Sender: FDA-Public Use
  Company Number: A0641373A

PATIENT
  Age: 34 Year
  Sex: Male

DRUGS (4)
  1. PAROXETINE [Suspect]
     Indication: ANXIETY
     Dosage: 20MG PER DAY
     Route: 048
  2. COREG [Concomitant]
  3. VASOTEC [Concomitant]
  4. LIPITOR [Concomitant]

REACTIONS (5)
  - AMNESIA [None]
  - DIZZINESS [None]
  - FEELING HOT [None]
  - VERTIGO [None]
  - VISION BLURRED [None]
